FAERS Safety Report 6978212-2 (Version None)
Quarter: 2010Q3

REPORT INFORMATION
  Report Type: 
  Country: None (occurrence: None)
  Receive Date: 20100913
  Receipt Date: 20100902
  Transmission Date: 20110219
  Serious: Yes (Hospitalization)
  Sender: FDA-Public Use
  Company Number: HU-ELI_LILLY_AND_COMPANY-HU201009002087

PATIENT
  Age: 51 Year
  Sex: Male

DRUGS (3)
  1. FORTEO [Suspect]
     Dosage: UNK UNK, DAILY (1/D)
     Route: 058
  2. MEDROL [Concomitant]
     Dosage: UNK
  3. FOSAMAX [Concomitant]

REACTIONS (1)
  - CEREBROVASCULAR ACCIDENT [None]
